FAERS Safety Report 9924753 (Version 1)
Quarter: 2014Q1

REPORT INFORMATION
  Report Type: Spontaneous
  Country: US (occurrence: US)
  Receive Date: 20140226
  Receipt Date: 20140226
  Transmission Date: 20141002
  Serious: No
  Sender: FDA-Public Use
  Company Number: US-PFIZER INC-2014052156

PATIENT
  Age: 74 Year
  Sex: Female
  Weight: 68.48 kg

DRUGS (1)
  1. ADVIL [Suspect]
     Indication: PAIN IN JAW
     Dosage: TWO TABLETS, UNK
     Route: 048
     Dates: start: 20140219

REACTIONS (2)
  - Poor quality sleep [Unknown]
  - Gastric disorder [Recovered/Resolved]
